FAERS Safety Report 22119651 (Version 1)
Quarter: 2023Q1

REPORT INFORMATION
  Report Type: Spontaneous
  Country: US (occurrence: None)
  Receive Date: 20230320
  Receipt Date: 20230320
  Transmission Date: 20230417
  Serious: Yes (Hospitalization)
  Sender: FDA-Public Use
  Company Number: None

PATIENT
  Sex: Female

DRUGS (15)
  1. HYQVIA [Suspect]
     Active Substance: HUMAN IMMUNOGLOBULIN G\HYALURONIDASE RECOMBINANT HUMAN
     Indication: Autoimmune thyroiditis
     Dosage: 20 GM/200ML SUBCUTANEOUS??PUSH 20 ML HY INTO SUB-Q SET AT 1 TO 2 ML PER MINUTE. THEN INFUSE 40 GM (4
     Route: 058
     Dates: start: 20191107
  2. ASPIRIN TAB EC [Concomitant]
  3. CLONIDINE TAB [Concomitant]
  4. DIFLUCAN TAB [Concomitant]
  5. FERROUS SULFATE ELX [Concomitant]
  6. FOLIC ACID TAB [Concomitant]
  7. MELATONIN CAP [Concomitant]
  8. MESTINON TAB [Concomitant]
  9. METHOTREXATE [Concomitant]
     Active Substance: METHOTREXATE
  10. POTASSIUM TAB [Concomitant]
  11. PREDNISONE [Concomitant]
     Active Substance: PREDNISONE
  12. PYRIDOSTIGM TAB [Concomitant]
  13. SERTRALINE HYDROCHLORIDE [Concomitant]
     Active Substance: SERTRALINE HYDROCHLORIDE
  14. SYNTHROID TAB [Concomitant]
  15. VISTARIL CAP [Concomitant]

REACTIONS (1)
  - Hospitalisation [None]
